FAERS Safety Report 9168643 (Version 3)
Quarter: 2013Q4

REPORT INFORMATION
  Report Type: Spontaneous
  Country: US (occurrence: US)
  Receive Date: 20130318
  Receipt Date: 20131125
  Transmission Date: 20140711
  Serious: Yes (Other)
  Sender: FDA-Public Use
  Company Number: US-JNJFOC-20130306143

PATIENT
  Sex: Male

DRUGS (6)
  1. INTELENCE [Suspect]
     Indication: HIV INFECTION
     Route: 048
  2. INTELENCE [Suspect]
     Indication: HIV INFECTION
     Route: 048
  3. CARVEDILOL [Concomitant]
     Indication: BLOOD PRESSURE
     Route: 065
  4. ISENTRESS [Concomitant]
     Route: 065
  5. VIREAD [Concomitant]
     Route: 065
  6. EPZICOM [Concomitant]
     Route: 065

REACTIONS (8)
  - Choking [Unknown]
  - Foreign body [Unknown]
  - Cough [Unknown]
  - Product coating issue [Unknown]
  - Product size issue [Unknown]
  - Product friable [Unknown]
  - Product formulation issue [Unknown]
  - Aspiration [Unknown]
